FAERS Safety Report 6431116-6 (Version None)
Quarter: 2009Q4

REPORT INFORMATION
  Report Type: 
  Country: None (occurrence: None)
  Receive Date: 20091106
  Receipt Date: 20091008
  Transmission Date: 20100525
  Serious: No
  Sender: FDA-Public Use
  Company Number: US-JNJFOC-20091003076

PATIENT
  Age: 43 Year
  Sex: Female

DRUGS (4)
  1. INVEGA [Suspect]
     Indication: SCHIZOPHRENIA
     Route: 048
  2. CELEXA [Concomitant]
     Indication: DRUG USE FOR UNKNOWN INDICATION
  3. SEROQUEL [Concomitant]
     Indication: DRUG USE FOR UNKNOWN INDICATION
  4. AMBIEN [Concomitant]
     Indication: DRUG USE FOR UNKNOWN INDICATION

REACTIONS (1)
  - BLOOD PROLACTIN INCREASED [None]
